FAERS Safety Report 9861140 (Version 1)
Quarter: 2014Q1

REPORT INFORMATION
  Report Type: Spontaneous
  Country: AU (occurrence: AU)
  Receive Date: 20140202
  Receipt Date: 20140202
  Transmission Date: 20141002
  Serious: No
  Sender: FDA-Public Use
  Company Number: AU-ALLERGAN-1303727US

PATIENT
  Age: 27 Year
  Sex: Female

DRUGS (3)
  1. BOTOX [Suspect]
     Indication: SKIN WRINKLING
     Dosage: 20 UNITS, SINGLE
     Dates: start: 20130313, end: 20130313
  2. BOTOX [Suspect]
     Indication: SKIN WRINKLING
     Dosage: 9 UNITS, SINGLE
     Dates: start: 20130313, end: 20130313
  3. BOTOX [Suspect]
     Indication: SKIN WRINKLING
     Dosage: 2 UNITS, SINGLE
     Dates: start: 20130313, end: 20130313

REACTIONS (2)
  - Skin tightness [Not Recovered/Not Resolved]
  - Migraine [Recovering/Resolving]
